FAERS Safety Report 5043033-7 (Version None)
Quarter: 2006Q3

REPORT INFORMATION
  Report Type: 
  Country: None (occurrence: None)
  Receive Date: 20060705
  Receipt Date: 20060613
  Transmission Date: 20061208
  Serious: Yes (Other)
  Sender: FDA-Public Use
  Company Number: GB-NOVOPROD-254058

PATIENT
  Age: 61 Year
  Sex: Male
  Weight: 74 kg

DRUGS (5)
  1. NOVOMIX 30 [Suspect]
     Indication: DIABETES MELLITUS
     Dosage: 46 IU, QD
     Dates: start: 20060617, end: 20060618
  2. LEVEMIR [Suspect]
     Indication: DIABETES MELLITUS
     Dosage: 20 IU, QD
     Dates: start: 20060520, end: 20060522
  3. LEVEMIR [Suspect]
     Dosage: 206 IU, QD
     Dates: start: 20060527, end: 20060529
  4. NOVORAPID PENFILL [Suspect]
     Indication: DIABETES MELLITUS
     Dosage: 26 IU, QD
     Dates: start: 20060520, end: 20060522
  5. NOVORAPID PENFILL [Suspect]
     Dosage: 26 IU, QD
     Dates: start: 20060527, end: 20060529

REACTIONS (1)
  - INFLUENZA LIKE ILLNESS [None]
